FAERS Safety Report 14881158 (Version 1)
Quarter: 2018Q2

REPORT INFORMATION
  Report Type: Spontaneous
  Country: US (occurrence: US)
  Receive Date: 20180425
  Receipt Date: 20180425
  Transmission Date: 20180711
  Serious: Yes (Other)
  Sender: FDA-Public Use
  Company Number: None

PATIENT
  Age: 59 Year
  Sex: Male
  Weight: 138.15 kg

DRUGS (10)
  1. LISINOPRIL. [Suspect]
     Active Substance: LISINOPRIL
     Indication: CARDIOMYOPATHY
     Route: 048
     Dates: start: 20180126, end: 20180413
  2. FUROSEMIDE 40MG 1 TABLET DAILY [Concomitant]
     Dates: start: 20180126
  3. COREG 12.5MG 1 TABLET BID [Concomitant]
     Dates: start: 20180209
  4. POTASSIUM CHLORIDE ER 20 MEQ 1 TABLET QOD [Concomitant]
     Dates: start: 20180410
  5. ASPIRIN 81MGQD [Concomitant]
     Dates: start: 20180123
  6. ATORVASTATIN 40MG QD [Concomitant]
     Dates: start: 20180126
  7. AMIODARONE 200MG BID [Concomitant]
     Dates: start: 20180323
  8. ENTRESTO 24MG/26MG 1 TABLET BID [Concomitant]
     Dates: start: 20180413
  9. SPIRINOLACTOCE 25MG 1 TABLET QD [Concomitant]
     Dates: start: 20180126
  10. XARELTO 20MG 1 TABLET QD [Concomitant]
     Dates: start: 20180126

REACTIONS (1)
  - Left ventricular dysfunction [None]

NARRATIVE: CASE EVENT DATE: 20180413
